FAERS Safety Report 17944059 (Version 1)
Quarter: 2020Q2

REPORT INFORMATION
  Report Type: Report from Study
  Country: US (occurrence: US)
  Receive Date: 20200625
  Receipt Date: 20200625
  Transmission Date: 20200714
  Serious: Yes (Hospitalization)
  Sender: FDA-Public Use
  Company Number: US-BAYER-2020-109526

PATIENT
  Age: 87 Year
  Sex: Female
  Weight: 79.82 kg

DRUGS (4)
  1. ADEMPAS [Suspect]
     Active Substance: RIOCIGUAT
     Indication: PULMONARY ARTERIAL HYPERTENSION
     Dosage: 2.5 MG, TID
     Route: 048
  2. XARELTO [Concomitant]
     Active Substance: RIVAROXABAN
     Dosage: UNK
  3. ADEMPAS [Suspect]
     Active Substance: RIOCIGUAT
     Indication: PULMONARY ARTERIAL HYPERTENSION
     Dosage: UNK
     Dates: start: 20190329
  4. VENTAVIS [Concomitant]
     Active Substance: ILOPROST
     Dosage: UNK

REACTIONS (5)
  - Diarrhoea [None]
  - Fall [None]
  - Vomiting [None]
  - Abdominal pain [None]
  - Ankle fracture [None]

NARRATIVE: CASE EVENT DATE: 20200530
